FAERS Safety Report 5245166-9 (Version None)
Quarter: 2007Q1

REPORT INFORMATION
  Report Type: 
  Country: None (occurrence: None)
  Receive Date: 20070223
  Receipt Date: 20070214
  Transmission Date: 20070707
  Serious: Yes (Other)
  Sender: FDA-Public Use
  Company Number: PR-ROCHE-475997

PATIENT
  Age: 48 Year
  Sex: Male
  Weight: 67.6 kg

DRUGS (7)
  1. RIBAVIRIN [Suspect]
     Route: 048
     Dates: start: 20060302, end: 20061207
  2. PEG-INTERFERON ALFA 2A (RO 25-8310) [Suspect]
     Route: 058
     Dates: start: 20060302, end: 20061207
  3. FIBER NOS [Concomitant]
     Dates: start: 20060803
  4. ANALPRAM-HC [Concomitant]
     Dates: start: 20060803
  5. HEMATRON [Concomitant]
     Dosage: REPORTED AS HEMATRON AL.
     Dates: start: 20060427
  6. METAMUCIL [Concomitant]
  7. SYNTHROID [Concomitant]
     Dates: start: 20051115

REACTIONS (7)
  - BLOOD CREATINE PHOSPHOKINASE INCREASED [None]
  - HAEMOLYTIC ANAEMIA [None]
  - HAEMORRHAGIC ANAEMIA [None]
  - HAEMORRHOIDAL HAEMORRHAGE [None]
  - NEPHROLITHIASIS [None]
  - REFUSAL OF TREATMENT BY PATIENT [None]
  - URINARY TRACT INFECTION [None]
